FAERS Safety Report 4571568-X (Version None)
Quarter: 2005Q1

REPORT INFORMATION
  Report Type: 
  Country: None (occurrence: None)
  Receive Date: 20050203
  Receipt Date: 20050203
  Transmission Date: 20050727
  Serious: No
  Sender: FDA-Public Use
  Company Number: None

PATIENT
  Sex: Female
  Weight: 114.3065 kg

DRUGS (1)
  1. PERCOCET [Suspect]
     Indication: ROTATOR CUFF SYNDROME
     Dosage: ONE PO Q 6 H PRN # 56
     Route: 048

REACTIONS (1)
  - DYSPEPSIA [None]
